FAERS Safety Report 7832692-9 (Version None)
Quarter: 2011Q4

REPORT INFORMATION
  Report Type: 
  Country: None (occurrence: None)
  Receive Date: 20111024
  Receipt Date: 20111013
  Transmission Date: 20120403
  Serious: No
  Sender: FDA-Public Use
  Company Number: US-BIOGENIDEC-2011BI039213

PATIENT
  Age: 56 Year
  Sex: Male

DRUGS (2)
  1. TYSABRI [Suspect]
     Indication: MULTIPLE SCLEROSIS
     Route: 042
     Dates: start: 20110627, end: 20110726
  2. TYSABRI [Suspect]
     Route: 042
     Dates: start: 20081016, end: 20090317

REACTIONS (2)
  - DRUG DELIVERY DEVICE IMPLANTATION [None]
  - URINARY TRACT INFECTION [None]
